FAERS Safety Report 8547686-8 (Version None)
Quarter: 2012Q3

REPORT INFORMATION
  Report Type: 
  Country: None (occurrence: None)
  Receive Date: 20120727
  Receipt Date: 20111128
  Transmission Date: 20120928
  Serious: Yes (Other)
  Sender: FDA-Public Use
  Company Number: US-ASTRAZENECA-2011SE72414

PATIENT
  Age: 49 Year
  Sex: Female

DRUGS (2)
  1. SEROQUEL [Suspect]
     Route: 048
  2. ZOMIG [Suspect]
     Route: 048

REACTIONS (5)
  - MALAISE [None]
  - STRESS [None]
  - PAIN [None]
  - COLLAGEN DISORDER [None]
  - FIBROMYALGIA [None]
